FAERS Safety Report 5071650-7 (Version None)
Quarter: 2006Q3

REPORT INFORMATION
  Report Type: 
  Country: None (occurrence: None)
  Receive Date: 20060803
  Receipt Date: 20060803
  Transmission Date: 20061208
  Serious: Yes (Hospitalization)
  Sender: FDA-Public Use
  Company Number: None

PATIENT
  Age: 66 Year
  Sex: Female
  Weight: 68.2 kg

DRUGS (1)
  1. PACLITAXEL 285 MG     BEDFORD LABS [Suspect]
     Indication: BREAST CANCER
     Dosage: 285 MG IV
     Route: 042
     Dates: start: 20060720

REACTIONS (4)
  - CARDIAC FAILURE CONGESTIVE [None]
  - COUGH [None]
  - DYSPNOEA [None]
  - INFUSION RELATED REACTION [None]
